FAERS Safety Report 15457758 (Version 2)
Quarter: 2020Q3

REPORT INFORMATION
  Report Type: Report from Study
  Country: JP (occurrence: JP)
  Receive Date: 20181003
  Receipt Date: 20181029
  Transmission Date: 20201105
  Serious: Yes (Other)
  Sender: FDA-Public Use
  Company Number: JP-ROCHE-2191915

PATIENT
  Age: 46 Year
  Sex: Female

DRUGS (31)
  1. PERTUZUMAB. [Suspect]
     Active Substance: PERTUZUMAB
     Dosage: STRENGTH: 420MG/14 ML
     Route: 041
     Dates: start: 20150331
  2. ZANTAC [Concomitant]
     Active Substance: RANITIDINE HYDROCHLORIDE
     Dosage: DOSAGE IS UNCERTAIN.
     Route: 065
     Dates: start: 20150512, end: 20150714
  3. HIRUDOID (JAPAN) [Concomitant]
     Dosage: DOSAGE IS UNCERTAIN.
     Route: 003
     Dates: start: 20150512, end: 20150914
  4. MEDICON (DEXTROMETHORPHAN HYDROBROMIDE) [Concomitant]
     Active Substance: DEXTROMETHORPHAN HYDROBROMIDE
     Dosage: DOSAGE IS UNCERTAIN.
     Route: 065
     Dates: start: 20160707, end: 20160714
  5. TRASTUZUMAB. [Suspect]
     Active Substance: TRASTUZUMAB
     Route: 041
     Dates: start: 20150421
  6. RESTAMIN [Concomitant]
     Active Substance: DIPHENHYDRAMINE
     Dosage: DOSAGE IS UNCERTAIN.
     Route: 048
     Dates: start: 20150331, end: 20150714
  7. DEXART [Concomitant]
     Active Substance: DEXAMETHASONE SODIUM PHOSPHATE
     Dosage: DOSAGE IS UNCERTAIN.
     Route: 065
     Dates: start: 20150331, end: 20150714
  8. ALOXI [Concomitant]
     Active Substance: PALONOSETRON HYDROCHLORIDE
     Dosage: DOSAGE IS UNCERTAIN.
     Route: 042
     Dates: start: 20150331, end: 20150714
  9. FUROSEMIDE. [Concomitant]
     Active Substance: FUROSEMIDE
     Dosage: DOSAGE IS UNCERTAIN.
     Route: 065
     Dates: start: 20180524, end: 20180727
  10. LEVOFLOXACIN HEMIHYDRATE [Concomitant]
     Active Substance: LEVOFLOXACIN
     Dosage: DOSAGE IS UNCERTAIN.
     Route: 048
     Dates: start: 20150701, end: 20150702
  11. BESOFTEN [Concomitant]
     Active Substance: PENTOSAN POLYSULFATE SODIUM
     Dosage: DOSAGE IS UNCERTAIN.
     Route: 003
     Dates: start: 20151117, end: 20171221
  12. PROPETO [Concomitant]
     Dosage: DOSAGE IS UNCERTAIN.
     Route: 065
     Dates: start: 20170904, end: 20171221
  13. PERTUZUMAB. [Suspect]
     Active Substance: PERTUZUMAB
     Route: 041
     Dates: start: 20150421
  14. CALONAL [Concomitant]
     Active Substance: ACETAMINOPHEN
     Dosage: DOSAGE IS UNCERTAIN.
     Route: 048
     Dates: start: 20150331, end: 20150331
  15. LOPERAMIDE HYDROCHLORIDE. [Concomitant]
     Active Substance: LOPERAMIDE HYDROCHLORIDE
     Dosage: DOSAGE IS UNCERTAIN.
     Route: 048
     Dates: start: 20150604, end: 20150914
  16. FUROSEMIDE. [Concomitant]
     Active Substance: FUROSEMIDE
     Dosage: DOSAGE IS UNCERTAIN.
     Route: 048
     Dates: start: 20150623, end: 20151006
  17. SPIRONOLACTONE. [Concomitant]
     Active Substance: SPIRONOLACTONE
     Dosage: DOSAGE IS UNCERTAIN.
     Route: 048
     Dates: start: 20180706, end: 20180727
  18. TRASTUZUMAB. [Suspect]
     Active Substance: TRASTUZUMAB
     Route: 041
     Dates: start: 20150331
  19. LEVOFLOXACIN HEMIHYDRATE [Concomitant]
     Active Substance: LEVOFLOXACIN
     Dosage: DOSAGE IS UNCERTAIN.
     Route: 048
     Dates: start: 20150703, end: 20150703
  20. MUCOSAL (JAPAN) [Concomitant]
     Dosage: DOSAGE IS UNCERTAIN.
     Route: 048
     Dates: start: 20150915, end: 20151006
  21. MEDICON (DEXTROMETHORPHAN HYDROBROMIDE) [Concomitant]
     Active Substance: DEXTROMETHORPHAN HYDROBROMIDE
     Dosage: DOSAGE IS UNCERTAIN.
     Route: 065
     Dates: start: 20150825, end: 20151006
  22. SODIUM FERROUS CITRATE [Concomitant]
     Active Substance: SODIUM FERROUS CITRATE
     Indication: ANAEMIA
     Route: 065
     Dates: start: 20180727
  23. POSTERISAN [Concomitant]
     Active Substance: LIDOCAINE
     Dosage: DOSAGE IS UNCERTAIN.
     Route: 003
     Dates: start: 20150604, end: 20150914
  24. KEISHIBUKURYOGAN [Concomitant]
     Active Substance: HERBALS
     Dosage: DOSAGE IS UNCERTAIN.
     Route: 065
     Dates: start: 20160322, end: 20160726
  25. DOCETAXEL. [Suspect]
     Active Substance: DOCETAXEL
     Route: 041
     Dates: start: 20150331
  26. DECADRON [Concomitant]
     Active Substance: DEXAMETHASONE
     Dosage: DOSAGE IS UNCERTAIN.
     Route: 048
  27. RHYTHMY [Concomitant]
     Active Substance: RILMAZAFONE HYDROCHLORIDE
     Dosage: DOSAGE IS UNCERTAIN.
     Route: 048
     Dates: start: 20151006, end: 20171221
  28. HOCHUEKKITO [Concomitant]
     Active Substance: HERBALS
     Dosage: DOSAGE IS UNCERTAIN.
     Route: 048
     Dates: start: 20170322, end: 20170410
  29. RESTAMIN [Concomitant]
     Active Substance: DIPHENHYDRAMINE
     Dosage: DOSAGE IS UNCERTAIN.
     Route: 003
     Dates: start: 20150407, end: 20150415
  30. RESTAMIN [Concomitant]
     Active Substance: DIPHENHYDRAMINE
     Dosage: DOSAGE IS UNCERTAIN.
     Route: 003
     Dates: start: 20150423, end: 20150428
  31. SALAZAC [Concomitant]
     Dosage: DOSAGE IS UNCERTAIN.
     Route: 048
     Dates: start: 20151228, end: 20160101

REACTIONS (1)
  - Endometrial adenocarcinoma [Not Recovered/Not Resolved]

NARRATIVE: CASE EVENT DATE: 20180909
